FAERS Safety Report 18347863 (Version 2)
Quarter: 2020Q4

REPORT INFORMATION
  Report Type: Other
  Country: DE (occurrence: DE)
  Receive Date: 20201006
  Receipt Date: 20201015
  Transmission Date: 20210114
  Serious: Yes (Other)
  Sender: FDA-Public Use
  Company Number: DE-LUPIN PHARMACEUTICALS INC.-2020-06764

PATIENT
  Age: 80 Year
  Sex: Male
  Weight: 65 kg

DRUGS (20)
  1. LAMOTRIGINE. [Suspect]
     Active Substance: LAMOTRIGINE
     Dosage: 200 MILLIGRAM, BID (200 - 0 - 200) AT 12 HR INTERVAL
     Route: 065
     Dates: start: 20171107
  2. LAMOTRIGINE. [Suspect]
     Active Substance: LAMOTRIGINE
     Dosage: 25 MILLIGRAM, TID (25 - 25 - 25MG) AT 8 HR INTERVAL
     Route: 065
     Dates: start: 20161108
  3. LEVETIRACETAM ZENTIVA [Suspect]
     Active Substance: LEVETIRACETAM
     Indication: EPILEPSY
     Dosage: 1250 MILLIGRAM, QD (500-0-750)
     Route: 065
     Dates: start: 20200219
  4. ASS ABZ PROTECT [Concomitant]
     Indication: PROPHYLAXIS
     Dosage: 1 DOSAGE FORM, QD (1-0-0 AFTER EATING)
     Route: 065
  5. GLIVEC [Concomitant]
     Active Substance: IMATINIB MESYLATE
     Dosage: 400 MILLIGRAM, QD (0-0-400)
     Route: 065
     Dates: start: 20140701, end: 20141222
  6. LAMOTRIGINE. [Suspect]
     Active Substance: LAMOTRIGINE
     Indication: EPILEPSY
     Dosage: 150 MILLIGRAM BID (150-0-150MG) AT 12 HR INTERVAL
     Route: 065
     Dates: start: 20180211
  7. LAMOTRIGINE. [Suspect]
     Active Substance: LAMOTRIGINE
     Dosage: 100 MILLIGRAM, BID (100-0-100MG) AT 12 HR INTERVAL
     Route: 065
     Dates: start: 20171107
  8. ZOPICLODURA [Concomitant]
     Active Substance: ZOPICLONE
     Indication: SLEEP DISORDER
     Dosage: 7.5 MILLIGRAM (AS NECESSARY)
     Route: 065
  9. LEVETIRACETAM. [Suspect]
     Active Substance: LEVETIRACETAM
     Indication: EPILEPSY
     Dosage: 1500 MILLIGRAM (500 - 0 - 1000 )
     Route: 048
     Dates: start: 20201030
  10. LAMOTRIGINE. [Suspect]
     Active Substance: LAMOTRIGINE
     Dosage: 25 MILLIGRAM, QD (0-0-25)
     Route: 065
     Dates: start: 20120626
  11. GLIVEC [Concomitant]
     Active Substance: IMATINIB MESYLATE
     Indication: CHRONIC MYELOID LEUKAEMIA
     Dosage: 100 MILLIGRAM, QID (4X100MG/TAG) AT 6 HR INTERVAL
     Route: 065
     Dates: start: 20020211
  12. TASIGNA [Concomitant]
     Active Substance: NILOTINIB
     Indication: PRODUCT USED FOR UNKNOWN INDICATION
     Dosage: 200 MILLIGRAM, QD
     Route: 065
     Dates: start: 201310
  13. LAMOTRIGINE. [Suspect]
     Active Substance: LAMOTRIGINE
     Dosage: 75 MILLIGRAM, BID (75-0-75MG) AT 12 HR INTERVAL
     Route: 065
     Dates: start: 20170207
  14. RAMIPRIL-ISIS [Concomitant]
     Indication: BLOOD PRESSURE MEASUREMENT
     Dosage: UNK (AFTER MEAL)
     Route: 065
     Dates: start: 20190705
  15. LEVETIRACETAM. [Suspect]
     Active Substance: LEVETIRACETAM
     Dosage: 1500 MILLIGRAM (500-0-750)
     Route: 048
     Dates: start: 20200219
  16. LAMOTRIGINE. [Suspect]
     Active Substance: LAMOTRIGINE
     Dosage: 125 MILLIGRAM, BID (125-0-125) AT 12 HR INTERVAL
     Route: 065
     Dates: start: 20171220
  17. TAVOR EXPIDET [Concomitant]
     Active Substance: LORAZEPAM
     Indication: PRODUCT USED FOR UNKNOWN INDICATION
     Dosage: 1 MILLIGRAM (AS NECESSARY) ONLY IN AN EMERGENCY DURING AN ATTACK
     Route: 065
  18. LEVETIRACETAM ZENTIVA [Suspect]
     Active Substance: LEVETIRACETAM
     Dosage: 1500 MILLIGRAM, QD (500 - 0 - 1000)
     Route: 048
     Dates: start: 20191030
  19. ASS ABZ PROTECT [Concomitant]
     Indication: THROMBOSIS PROPHYLAXIS
  20. SIMVA [Concomitant]
     Active Substance: SIMVASTATIN
     Indication: BLOOD CHOLESTEROL
     Dosage: 1 DOSAGE FORM, QD (0-0-1 AFTER MEAL)
     Route: 065

REACTIONS (7)
  - Basal cell carcinoma [Not Recovered/Not Resolved]
  - Adverse reaction [Unknown]
  - Dizziness [Not Recovered/Not Resolved]
  - Depression [Not Recovered/Not Resolved]
  - Fatigue [Not Recovered/Not Resolved]
  - Gait disturbance [Not Recovered/Not Resolved]
  - Vertigo positional [Not Recovered/Not Resolved]

NARRATIVE: CASE EVENT DATE: 20190920
